FAERS Safety Report 10636712 (Version 10)
Quarter: 2018Q1

REPORT INFORMATION
  Report Type: Report from Study
  Country: CA (occurrence: CA)
  Receive Date: 20141208
  Receipt Date: 20180305
  Transmission Date: 20180508
  Serious: Yes (Hospitalization, Other)
  Sender: FDA-Public Use
  Company Number: CA-ROCHE-1043927

PATIENT
  Age: 61 Year
  Sex: Female
  Weight: 72.6 kg

DRUGS (14)
  1. ACETAMINOPHEN. [Concomitant]
     Active Substance: ACETAMINOPHEN
     Indication: PREMEDICATION
     Route: 065
     Dates: start: 20121010, end: 20121010
  2. FERROUS SULFATE. [Concomitant]
     Active Substance: FERROUS SULFATE
  3. CELEBREX [Concomitant]
     Active Substance: CELECOXIB
  4. RITUXAN [Suspect]
     Active Substance: RITUXIMAB
     Indication: RHEUMATOID ARTHRITIS
     Dosage: DATE OF LAST DOSE OF RITUXIMAB: 08/APR/2014: LAST DOSE 24/FEB/2015
     Route: 042
     Dates: start: 20100526
  5. DIPHENHYDRAMINE HCL [Concomitant]
     Active Substance: DIPHENHYDRAMINE HYDROCHLORIDE
     Indication: PREMEDICATION
     Route: 048
     Dates: start: 20110816, end: 20110816
  6. DIPHENHYDRAMINE HCL [Concomitant]
     Active Substance: DIPHENHYDRAMINE HYDROCHLORIDE
     Route: 048
     Dates: start: 20100526
  7. TYLENOL [Concomitant]
     Active Substance: ACETAMINOPHEN
  8. RITUXAN [Suspect]
     Active Substance: RITUXIMAB
     Route: 042
     Dates: start: 20121025, end: 20121025
  9. PLAQUENIL [Concomitant]
     Active Substance: HYDROXYCHLOROQUINE SULFATE
  10. ACETAMINOPHEN. [Concomitant]
     Active Substance: ACETAMINOPHEN
     Route: 048
     Dates: start: 20100526
  11. METHYLPREDNISOLONE. [Concomitant]
     Active Substance: METHYLPREDNISOLONE
     Indication: PREMEDICATION
     Route: 042
     Dates: start: 20100526, end: 20110816
  12. NEXIUM [Concomitant]
     Active Substance: ESOMEPRAZOLE MAGNESIUM
  13. FOSAMAX [Concomitant]
     Active Substance: ALENDRONATE SODIUM
  14. METHYLPREDNISOLONE. [Concomitant]
     Active Substance: METHYLPREDNISOLONE
     Route: 042
     Dates: start: 20100526

REACTIONS (16)
  - Diarrhoea [Unknown]
  - Oropharyngeal discomfort [Recovering/Resolving]
  - Cough [Recovered/Resolved]
  - Infusion related reaction [Recovered/Resolved]
  - Arthritis [Not Recovered/Not Resolved]
  - Osteoarthritis [Not Recovered/Not Resolved]
  - Colitis microscopic [Unknown]
  - Ill-defined disorder [Recovering/Resolving]
  - Productive cough [Unknown]
  - Throat irritation [Recovered/Resolved]
  - Blood magnesium decreased [Unknown]
  - Infusion related reaction [Unknown]
  - Pharyngeal paraesthesia [Unknown]
  - Rash [Unknown]
  - Cough [Unknown]
  - Pneumonia [Recovering/Resolving]

NARRATIVE: CASE EVENT DATE: 20110816
